FAERS Safety Report 21358692 (Version 1)
Quarter: 2022Q3

REPORT INFORMATION
  Report Type: Spontaneous
  Country: IR (occurrence: IR)
  Receive Date: 20220921
  Receipt Date: 20220921
  Transmission Date: 20221027
  Serious: Yes (Death, Life-Threatening, Hospitalization, Other)
  Sender: FDA-Public Use
  Company Number: IR-MLMSERVICE-20220511-3550146-1

PATIENT
  Age: 45 Year
  Sex: Female

DRUGS (15)
  1. METHOTREXATE [Suspect]
     Active Substance: METHOTREXATE
     Indication: Choriocarcinoma
     Dosage: FOURTH PHASE OF CHEMOTHERAPY
  2. DACTINOMYCIN [Concomitant]
     Active Substance: DACTINOMYCIN
     Indication: Choriocarcinoma
     Dosage: FIFTH PHASE OF CHEMOTHERAPY (AMP DACTINOMYCINE 0.5 MG)
  3. PREDNISOLONE [Concomitant]
     Active Substance: PREDNISOLONE
     Indication: Immunosuppressant drug therapy
  4. APREPITANT [Concomitant]
     Active Substance: APREPITANT
     Route: 048
  5. ENOXAPARIN [Concomitant]
     Active Substance: ENOXAPARIN
     Dosage: AMP ENOXAPARIN 40 MG
  6. ETOPOSIDE [Concomitant]
     Active Substance: ETOPOSIDE
     Indication: Choriocarcinoma
     Dosage: FIFTH PHASE OF CHEMOTHERAPY (AMP ETOPOSIDE 170 MG)
  7. SIROLIMUS [Concomitant]
     Active Substance: SIROLIMUS
     Indication: Immunosuppressant drug therapy
  8. NITROFURANTOIN [Concomitant]
     Active Substance: NITROFURANTOIN
  9. KYTRIL [Concomitant]
     Active Substance: GRANISETRON HYDROCHLORIDE
  10. INSULIN NOS [Concomitant]
     Active Substance: INSULIN NOS
  11. PREDNISOLONE [Concomitant]
     Active Substance: PREDNISOLONE
     Indication: Immunosuppressant drug therapy
  12. METHOTREXATE [Suspect]
     Active Substance: METHOTREXATE
     Indication: Choriocarcinoma
     Dosage: THE SECOND AND THIRD PHASES OF CHEMOTHERAPY. FIVE-DAY PERIOD MTX
  13. METHOTREXATE [Suspect]
     Active Substance: METHOTREXATE
     Indication: Choriocarcinoma
     Dosage: FIFTH PHASE OF CHEMOTHERAPY (AMP METHOTREXATE (MTX) 500 MG)
  14. METHOTREXATE [Suspect]
     Active Substance: METHOTREXATE
     Indication: Choriocarcinoma
     Dosage: THE SECOND AND THIRD PHASES OF CHEMOTHERAPY. FIVE-DAY PERIOD MTX
  15. METHOTREXATE [Suspect]
     Active Substance: METHOTREXATE
     Indication: Choriocarcinoma
     Dosage: FIRST PHASE OF CHEMOTHERAPY

REACTIONS (9)
  - Hepatitis acute [Fatal]
  - Hepatic encephalopathy [Fatal]
  - Thrombocytopenia [Fatal]
  - Hepatic failure [Fatal]
  - Disseminated intravascular coagulation [Fatal]
  - Jaundice [Fatal]
  - Hypotension [Fatal]
  - Hepatic necrosis [Fatal]
  - Hepatitis cholestatic [Fatal]
